FAERS Safety Report 4776275-6 (Version None)
Quarter: 2005Q3

REPORT INFORMATION
  Report Type: 
  Country: None (occurrence: None)
  Receive Date: 20050922
  Receipt Date: 20050914
  Transmission Date: 20060218
  Serious: Yes (Other)
  Sender: FDA-Public Use
  Company Number: US-JNJFOC-20050904881

PATIENT
  Sex: Female

DRUGS (2)
  1. DURAGESIC-100 [Suspect]
     Route: 062
     Dates: start: 20040901
  2. LASIX [Concomitant]
     Indication: FLUID RETENTION
     Route: 048
     Dates: start: 20040901

REACTIONS (2)
  - CATARACT [None]
  - FLUID RETENTION [None]
